FAERS Safety Report 6418759-0 (Version None)
Quarter: 2009Q4

REPORT INFORMATION
  Report Type: 
  Country: None (occurrence: None)
  Receive Date: 20091028
  Receipt Date: 20091014
  Transmission Date: 20100525
  Serious: Yes (Other)
  Sender: FDA-Public Use
  Company Number: GB-MYLANLABS-2009S1018031

PATIENT
  Sex: Female

DRUGS (5)
  1. LAMOTRIGINE [Suspect]
     Indication: DRUG USE FOR UNKNOWN INDICATION
  2. LAMOTRIGINE [Interacting]
  3. TEGRETOL [Interacting]
     Indication: DRUG USE FOR UNKNOWN INDICATION
  4. TEGRETOL [Interacting]
  5. TEGRETOL [Interacting]

REACTIONS (12)
  - BACK PAIN [None]
  - CONFUSIONAL STATE [None]
  - CONVULSION [None]
  - DRUG INTERACTION [None]
  - DYSPNOEA [None]
  - EXCESSIVE EYE BLINKING [None]
  - FEELING ABNORMAL [None]
  - HYPERHIDROSIS [None]
  - INFECTION [None]
  - MEMORY IMPAIRMENT [None]
  - PANIC ATTACK [None]
  - SPEECH DISORDER [None]
